FAERS Safety Report 8154725-5 (Version None)
Quarter: 2012Q1

REPORT INFORMATION
  Report Type: 
  Country: None (occurrence: None)
  Receive Date: 20120221
  Receipt Date: 20120208
  Transmission Date: 20120608
  Serious: Yes (Other)
  Sender: FDA-Public Use
  Company Number: PHEH2012US003353

PATIENT
  Sex: Male

DRUGS (11)
  1. TEGRETOL [Suspect]
     Dosage: 100 MG, QD
  2. SYNTHROID [Concomitant]
     Dosage: 100 UG, QD
  3. ISOSORBIDE DINITRATE [Concomitant]
     Dosage: 20 MG, TID
  4. LOSARTAN POTASSIUM [Concomitant]
     Dosage: 100 MG, QD
  5. XALATAN [Concomitant]
     Dosage: 2.5 ML, QD
  6. VITAMIN TAB [Suspect]
  7. LIPITOR [Concomitant]
     Dosage: 20 MG, QD
  8. LOSARTAN POTASSIUM [Concomitant]
     Dosage: 25 MG, QD
  9. NORVASC [Concomitant]
     Dosage: 10 MG, QD
  10. ASPIRIN [Concomitant]
     Dosage: 81 MG, QD
  11. BETAGAN [Concomitant]
     Dosage: 0.5 %, BID

REACTIONS (1)
  - HEARING IMPAIRED [None]
